FAERS Safety Report 9305390 (Version 1)
Quarter: 2013Q2

REPORT INFORMATION
  Report Type: Spontaneous
  Country: FI (occurrence: FI)
  Receive Date: 20130523
  Receipt Date: 20130523
  Transmission Date: 20140414
  Serious: Yes (Hospitalization, Other)
  Sender: FDA-Public Use
  Company Number: PHHY2013FI051417

PATIENT
  Age: 62 Year
  Sex: Female

DRUGS (3)
  1. LEPONEX [Suspect]
     Dosage: UNK UKN, UNK
  2. LEPONEX [Suspect]
     Dosage: UNK UKN, UNK
  3. FLUOROURACIL [Suspect]
     Indication: BREAST CANCER
     Dosage: UNK UKN, UNK

REACTIONS (3)
  - Psychotic disorder [Unknown]
  - Breast cancer [Unknown]
  - Leukopenia [Unknown]
